FAERS Safety Report 17511591 (Version 7)
Quarter: 2020Q3

REPORT INFORMATION
  Report Type: Spontaneous
  Country: US (occurrence: US)
  Receive Date: 20200308
  Receipt Date: 20200918
  Transmission Date: 20201102
  Serious: Yes (Other)
  Sender: FDA-Public Use
  Company Number: NVSC2020US058452

PATIENT
  Sex: Female

DRUGS (1)
  1. BEOVU [Suspect]
     Active Substance: BROLUCIZUMAB-DBLL
     Indication: NEOVASCULAR AGE-RELATED MACULAR DEGENERATION
     Dosage: 6 MG, QMO, BOTH EYES
     Route: 047

REACTIONS (5)
  - Vitritis [Not Recovered/Not Resolved]
  - Retinal degeneration [Unknown]
  - Retinal vasculitis [Not Recovered/Not Resolved]
  - Blindness transient [Recovering/Resolving]
  - Retinal artery occlusion [Recovered/Resolved with Sequelae]
